FAERS Safety Report 4527065-0 (Version None)
Quarter: 2004Q4

REPORT INFORMATION
  Report Type: 
  Country: None (occurrence: None)
  Receive Date: 20041213
  Receipt Date: 20041124
  Transmission Date: 20050328
  Serious: Yes (Life-Threatening)
  Sender: FDA-Public Use
  Company Number: 2004-05001

PATIENT
  Age: 18 Year
  Sex: Male

DRUGS (1)
  1. FLUOROURACIL [Suspect]
     Indication: SIGNET-RING CELL CARCINOMA
     Dosage: INTRAVENOUS
     Route: 042

REACTIONS (3)
  - ATRIAL THROMBOSIS [None]
  - INTRACARDIAC THROMBUS [None]
  - VENTRICULAR DYSFUNCTION [None]
